FAERS Safety Report 13937967 (Version 2)
Quarter: 2017Q3

REPORT INFORMATION
  Report Type: Spontaneous
  Country: CA (occurrence: CA)
  Receive Date: 20170905
  Receipt Date: 20170921
  Transmission Date: 20171127
  Serious: Yes (Other)
  Sender: FDA-Public Use
  Company Number: CA-SA-2017SA160504

PATIENT
  Age: 30 Year
  Sex: Male

DRUGS (4)
  1. LANTUS [Suspect]
     Active Substance: INSULIN GLARGINE
     Indication: TYPE 1 DIABETES MELLITUS
     Dosage: 42 UNITS DAILY, TAKING 15 UNITS 12 HOURS APART
     Route: 058
     Dates: start: 2010
  2. APIDRA [Suspect]
     Active Substance: INSULIN GLULISINE
     Dosage: 8 UNITS (SLIDING SCALE) DOSE:8 UNIT(S)
     Route: 058
     Dates: start: 2012
  3. APIDRA [Suspect]
     Active Substance: INSULIN GLULISINE
     Dosage: DOSE- 20-50 UNITS
     Route: 058
  4. LANTUS [Suspect]
     Active Substance: INSULIN GLARGINE
     Indication: TYPE 1 DIABETES MELLITUS
     Dosage: TOTAL DAILY DOSE- 30 UNITS
     Route: 058

REACTIONS (6)
  - Vision blurred [Not Recovered/Not Resolved]
  - Diabetic retinopathy [Not Recovered/Not Resolved]
  - Pruritus [Unknown]
  - Neovascularisation [Not Recovered/Not Resolved]
  - Product use issue [Unknown]
  - Retinal haemorrhage [Not Recovered/Not Resolved]

NARRATIVE: CASE EVENT DATE: 201707
